FAERS Safety Report 22542080 (Version 1)
Quarter: 2023Q2

REPORT INFORMATION
  Report Type: Spontaneous
  Country: FR (occurrence: FR)
  Receive Date: 20230609
  Receipt Date: 20230609
  Transmission Date: 20230722
  Serious: Yes (Life-Threatening, Hospitalization)
  Sender: FDA-Public Use
  Company Number: None

PATIENT
  Age: 31 Year
  Sex: Female
  Weight: 108 kg

DRUGS (4)
  1. ROCURONIUM BROMIDE [Suspect]
     Active Substance: ROCURONIUM BROMIDE
     Indication: General anaesthesia
     Dosage: 0.6MG/KG
     Route: 042
     Dates: start: 20230224, end: 20230224
  2. REMIFENTANIL HYDROCHLORIDE [Concomitant]
     Active Substance: REMIFENTANIL HYDROCHLORIDE
     Indication: General anaesthesia
     Dosage: 11.47 ML AT 25MG/ML
     Dates: start: 20230224, end: 20230224
  3. XYLOCAINE 1 PERCENT (200 mg/20 ml) ADRENALINE,  solution for injection [Concomitant]
     Indication: Product used for unknown indication
     Dosage: 50MG
     Dates: start: 20230224, end: 20230224
  4. PROPOFOL [Concomitant]
     Active Substance: PROPOFOL
     Indication: General anaesthesia
     Dosage: 200MG
     Route: 042
     Dates: start: 20230224, end: 20230224

REACTIONS (1)
  - Anaphylactic shock [Recovered/Resolved]

NARRATIVE: CASE EVENT DATE: 20230224
